FAERS Safety Report 11457904 (Version 1)
Quarter: 2015Q3

REPORT INFORMATION
  Report Type: Spontaneous
  Country: US (occurrence: None)
  Receive Date: 20150903
  Receipt Date: 20150903
  Transmission Date: 20151125
  Serious: Yes (Other)
  Sender: FDA-Public Use
  Company Number: None

PATIENT
  Age: 13 Year
  Sex: Female
  Weight: 43.6 kg

DRUGS (2)
  1. OMPEPRAZOLE 20 MG [Suspect]
     Active Substance: OMEPRAZOLE
     Indication: GASTROOESOPHAGEAL REFLUX DISEASE
     Route: 048
     Dates: start: 20150710
  2. ESOMEPRAZOLE 40 MG [Suspect]
     Active Substance: ESOMEPRAZOLE
     Indication: GASTROOESOPHAGEAL REFLUX DISEASE
     Dosage: 05-AUG-2015
     Route: 048

REACTIONS (6)
  - Feeding disorder [None]
  - Decreased appetite [None]
  - Abdominal discomfort [None]
  - Condition aggravated [None]
  - Product substitution issue [None]
  - Weight decreased [None]

NARRATIVE: CASE EVENT DATE: 20150730
